FAERS Safety Report 11197057 (Version 1)
Quarter: 2015Q2

REPORT INFORMATION
  Report Type: Spontaneous
  Country: US (occurrence: US)
  Receive Date: 20150617
  Receipt Date: 20150617
  Transmission Date: 20150821
  Serious: No
  Sender: FDA-Public Use
  Company Number: US-TAKEDA-2014MPI003422

PATIENT
  Age: 60 Year
  Sex: Male
  Weight: 115.5 kg

DRUGS (2)
  1. KYTRIL [Concomitant]
     Active Substance: GRANISETRON HYDROCHLORIDE
     Route: 042
  2. VELCADE [Suspect]
     Active Substance: BORTEZOMIB
     Indication: PLASMA CELL MYELOMA
     Dosage: 3 MG, 1/WEEK
     Route: 058
     Dates: start: 201405

REACTIONS (1)
  - Infection [Unknown]

NARRATIVE: CASE EVENT DATE: 20141222
